FAERS Safety Report 5529354-X (Version None)
Quarter: 2007Q4

REPORT INFORMATION
  Report Type: 
  Country: None (occurrence: None)
  Receive Date: 20071129
  Receipt Date: 20071126
  Transmission Date: 20080405
  Serious: Yes (Other)
  Sender: FDA-Public Use
  Company Number: A0685640A

PATIENT
  Age: 56 Year
  Sex: Male

DRUGS (2)
  1. ADVAIR DISKUS 100/50 [Suspect]
     Indication: ASTHMA
     Dosage: 1PUFF TWICE PER DAY
     Route: 055
     Dates: start: 20061001
  2. ALBUTEROL [Concomitant]

REACTIONS (2)
  - ASTHMA EXERCISE INDUCED [None]
  - PHARMACEUTICAL PRODUCT COMPLAINT [None]
